FAERS Safety Report 13917986 (Version 3)
Quarter: 2019Q2

REPORT INFORMATION
  Report Type: Report from Study
  Country: US (occurrence: US)
  Receive Date: 20170829
  Receipt Date: 20190426
  Transmission Date: 20190711
  Serious: No
  Sender: FDA-Public Use
  Company Number: US-SA-2016SA194604

PATIENT
  Age: 47 Year
  Sex: Male

DRUGS (1)
  1. AGALSIDASE BETA [Suspect]
     Active Substance: AGALSIDASE BETA
     Indication: FABRY^S DISEASE
     Dosage: 15 MG/KG, QOW
     Route: 042
     Dates: start: 20030804

REACTIONS (2)
  - Drug specific antibody present [Unknown]
  - Hypertrophy [Unknown]
